FAERS Safety Report 5031999-0 (Version None)
Quarter: 2006Q2

REPORT INFORMATION
  Report Type: 
  Country: None (occurrence: None)
  Receive Date: 20060602
  Receipt Date: 20060529
  Transmission Date: 20061013
  Serious: Yes (Life-Threatening)
  Sender: FDA-Public Use
  Company Number: 200610076

PATIENT
  Age: 36 Year
  Sex: Male
  Weight: 67 kg

DRUGS (5)
  1. ALBUMIN 5% (ZLB BEHRING) [Suspect]
     Dosage: 500 ML DAILY IV
     Route: 042
  2. TORADOL [Suspect]
     Indication: PAIN MANAGEMENT
     Dosage: 500 ML DAILY IV; 60 MG DAILY
     Route: 042
  3. SODIUM BICARBONATE [Concomitant]
  4. HYDROMORPHONE HCL [Concomitant]
  5. CEFAZOLIN [Concomitant]

REACTIONS (6)
  - DYSPNOEA [None]
  - HYPOTENSION [None]
  - INCORRECT DRUG ADMINISTRATION RATE [None]
  - INFUSION RELATED REACTION [None]
  - RESPIRATORY DISTRESS [None]
  - TACHYCARDIA [None]
